FAERS Safety Report 14348908 (Version 4)
Quarter: 2018Q1

REPORT INFORMATION
  Report Type: Report from Study
  Country: ES (occurrence: ES)
  Receive Date: 20180104
  Receipt Date: 20180315
  Transmission Date: 20180509
  Serious: Yes (Hospitalization)
  Sender: FDA-Public Use
  Company Number: ES-ROCHE-2048869

PATIENT
  Age: 67 Year
  Sex: Male
  Weight: 88 kg

DRUGS (6)
  1. ALLOPURINOL. [Concomitant]
     Active Substance: ALLOPURINOL
     Route: 065
     Dates: start: 20171228
  2. ATEZOLIZUMAB. [Suspect]
     Active Substance: ATEZOLIZUMAB
     Indication: NEOPLASM
     Dosage: MOST RECENT FLAT DOSE PRIOR TO EVENT 19/DEC/2017
     Route: 042
     Dates: start: 20171219
  3. ENALAPRIL/HCT [Concomitant]
     Dosage: TOTAL DAILY DOSE/UNIT: 20/12.5MG/Q24H
     Route: 065
  4. ONDASETRON [Concomitant]
     Active Substance: ONDANSETRON
     Route: 065
     Dates: start: 20171228, end: 20180103
  5. METOCLOPRAMIDE. [Concomitant]
     Active Substance: METOCLOPRAMIDE
     Route: 065
     Dates: start: 20171228, end: 20180103
  6. RO 7009789 (CD40 AGONIST) [Suspect]
     Active Substance: INVESTIGATIONAL PRODUCT
     Indication: NEOPLASM
     Dosage: MOST RECENT FLAT DOSE PRIOR TO EVENT 20/DEC/2017 TAKEN ONCE
     Route: 058
     Dates: start: 20171220

REACTIONS (1)
  - Injection site reaction [Recovered/Resolved]

NARRATIVE: CASE EVENT DATE: 20171227
